FAERS Safety Report 11056549 (Version 3)
Quarter: 2015Q2

REPORT INFORMATION
  Report Type: Spontaneous
  Country: US (occurrence: US)
  Receive Date: 20150422
  Receipt Date: 20150605
  Transmission Date: 20150821
  Serious: Yes (Life-Threatening, Hospitalization)
  Sender: FDA-Public Use
  Company Number: US-JNJFOC-20150323070

PATIENT
  Age: 40 Year
  Sex: Female

DRUGS (2)
  1. INVOKANA [Suspect]
     Active Substance: CANAGLIFLOZIN
     Indication: WEIGHT DECREASED
     Dosage: FOR 2 - 3 MONTHS
     Route: 048
  2. INVOKANA [Suspect]
     Active Substance: CANAGLIFLOZIN
     Indication: HYPOGLYCAEMIA
     Dosage: FOR 2 - 3 MONTHS
     Route: 048

REACTIONS (4)
  - Asthma [Recovered/Resolved]
  - Urine abnormality [Recovered/Resolved]
  - Off label use [Unknown]
  - Diabetic ketoacidosis [Recovered/Resolved]

NARRATIVE: CASE EVENT DATE: 20141220
